FAERS Safety Report 9953205 (Version 1)
Quarter: 2014Q1

REPORT INFORMATION
  Report Type: Report from Study
  Country: JP (occurrence: JP)
  Receive Date: 20140304
  Receipt Date: 20140304
  Transmission Date: 20141002
  Serious: Yes (Other)
  Sender: FDA-Public Use
  Company Number: JP-VERTEX PHARMACEUTICALS INC-2014-001066

PATIENT
  Age: 65 Year
  Sex: Male

DRUGS (13)
  1. VX-950 (TELAPREVIR) [Suspect]
     Indication: CHRONIC HEPATITIS C
     Dosage: 1500 MG, QD
     Route: 048
     Dates: start: 20120509, end: 20120801
  2. PEGINTERFERON ALFA-2B [Suspect]
     Indication: CHRONIC HEPATITIS C
     Dosage: 1.5 ?G/KG, QW
     Route: 058
     Dates: start: 20120509
  3. RIBAVIRIN [Concomitant]
     Dosage: 800 MG, QD
     Route: 048
     Dates: start: 20120509, end: 20120605
  4. RIBAVIRIN [Concomitant]
     Dosage: 200 MG, QD
     Route: 048
     Dates: start: 20120606, end: 20120710
  5. RIBAVIRIN [Concomitant]
     Dosage: 400 MG, QD
     Route: 048
     Dates: start: 20120711, end: 20120724
  6. RIBAVIRIN [Concomitant]
     Dosage: 200 MG, QD
     Route: 048
     Dates: start: 20120725
  7. URSO [Concomitant]
     Dosage: 600 MG, QD
     Route: 048
  8. NELBIS [Concomitant]
     Dosage: 500 MG, QD
     Route: 048
  9. ACTOS [Concomitant]
     Dosage: 7.5 MG, QD
     Route: 048
  10. DIOVAN [Concomitant]
     Dosage: 40 MG, QD
     Route: 048
  11. EBASTEL [Concomitant]
     Dosage: 5 MG, QD
     Route: 048
  12. PROMAC [Concomitant]
     Dosage: 150 MG, QD
     Route: 048
     Dates: start: 20120510
  13. LIVACT [Concomitant]
     Dosage: 3 DF, QD
     Route: 048
     Dates: start: 20120620

REACTIONS (1)
  - Erythema multiforme [Recovered/Resolved]
